FAERS Safety Report 23408309 (Version 3)
Quarter: 2024Q2

REPORT INFORMATION
  Report Type: Spontaneous
  Country: US (occurrence: US)
  Receive Date: 20240117
  Receipt Date: 20240530
  Transmission Date: 20240716
  Serious: Yes (Hospitalization, Other)
  Sender: FDA-Public Use
  Company Number: US-AMNEAL PHARMACEUTICALS-2023-AMRX-04356

PATIENT
  Sex: Male
  Weight: 34.195 kg

DRUGS (5)
  1. VIGABATRIN [Suspect]
     Active Substance: VIGABATRIN
     Indication: Illness
     Dosage: 20 ML (1000 MG), 2X/DAY
     Route: 048
  2. VIGABATRIN [Suspect]
     Active Substance: VIGABATRIN
     Indication: Seizure
     Dosage: DILUTE AND DRINK 2 PACKETS IN 20 ML OF WATER AND GIVE/TAKE 20 ML (1000 MG) TWICE A DAY
     Route: 048
  3. VIGABATRIN [Suspect]
     Active Substance: VIGABATRIN
     Indication: Epilepsy
  4. EPIDIOLEX [Concomitant]
     Active Substance: CANNABIDIOL
     Indication: Product used for unknown indication
     Dosage: UNK
     Route: 065
  5. SABRIL [Concomitant]
     Active Substance: VIGABATRIN
     Indication: Product used for unknown indication
     Dosage: UNK
     Route: 065

REACTIONS (2)
  - Ill-defined disorder [Unknown]
  - Seizure [Unknown]
